FAERS Safety Report 13772695 (Version 1)
Quarter: 2017Q3

REPORT INFORMATION
  Report Type: Spontaneous
  Country: AR (occurrence: AR)
  Receive Date: 20170720
  Receipt Date: 20170720
  Transmission Date: 20171127
  Serious: Yes (Other)
  Sender: FDA-Public Use
  Company Number: AR-BAYER-2017-134440

PATIENT
  Age: 59 Year
  Sex: Male

DRUGS (1)
  1. STIVARGA [Suspect]
     Active Substance: REGORAFENIB
     Dosage: 120 MG, QD DURING 21 DAYS
     Dates: start: 201608

REACTIONS (10)
  - Skin exfoliation [None]
  - Erythema [None]
  - Gait disturbance [None]
  - Off label use [None]
  - Palmar-plantar erythrodysaesthesia syndrome [Recovered/Resolved]
  - Plantar erythema [None]
  - Disease progression [None]
  - Palmar-plantar erythrodysaesthesia syndrome [None]
  - Pain in extremity [None]
  - Hyperkeratosis [None]

NARRATIVE: CASE EVENT DATE: 2016
